FAERS Safety Report 22155836 (Version 25)
Quarter: 2025Q4

REPORT INFORMATION
  Report Type: Spontaneous
  Country: US (occurrence: US)
  Receive Date: 20230330
  Receipt Date: 20251024
  Transmission Date: 20260118
  Serious: Yes (Hospitalization, Other)
  Sender: PFIZER
  Company Number: US-PFIZER INC-202200534709

PATIENT
  Age: 77 Year
  Sex: Female
  Weight: 85.533 kg

DRUGS (4)
  1. IBRANCE [Suspect]
     Active Substance: PALBOCICLIB
     Indication: Breast cancer female
     Dosage: 125 MG
  2. IBRANCE [Suspect]
     Active Substance: PALBOCICLIB
     Dosage: 100 MG
  3. IBRANCE [Suspect]
     Active Substance: PALBOCICLIB
     Dosage: 100 MG, CYCLIC (1 CAPSULE DAILY ON DAYS 1-21, THEN OFF FOR 7 DAYS)
     Route: 048
  4. BOSULIF [Concomitant]
     Active Substance: BOSUTINIB MONOHYDRATE
     Dosage: 100 MG
     Route: 048

REACTIONS (14)
  - Ear disorder [Unknown]
  - COVID-19 [Unknown]
  - Pneumonia [Unknown]
  - Cerebrovascular accident [Unknown]
  - Hypoacusis [Unknown]
  - Pharyngeal injury [Unknown]
  - Hand fracture [Unknown]
  - Breast cancer female [Unknown]
  - Malignant neoplasm progression [Unknown]
  - Metastases to liver [Unknown]
  - Metastases to ovary [Unknown]
  - White blood cell count decreased [Unknown]
  - Intentional product use issue [Unknown]
  - Product use issue [Unknown]

NARRATIVE: CASE EVENT DATE: 20250101
